FAERS Safety Report 4279375-2 (Version None)
Quarter: 2004Q1

REPORT INFORMATION
  Report Type: 
  Country: None (occurrence: None)
  Receive Date: 20040127
  Receipt Date: 20030709
  Transmission Date: 20041129
  Serious: Yes (Death, Life-Threatening, Hospitalization)
  Sender: FDA-Public Use
  Company Number: WAES 0307DEU00072

PATIENT
  Age: 81 Year
  Sex: Male

DRUGS (7)
  1. VASOTEC [Suspect]
     Route: 048
  2. ESOMEPRAZOLE MAGNESIUM [Suspect]
     Route: 048
     Dates: start: 20030101
  3. FUROSEMIDE SODIUM [Suspect]
     Route: 048
     Dates: start: 20030101
  4. OLANZAPINE [Suspect]
     Route: 048
  5. RISPERIDONE [Suspect]
     Route: 048
  6. VIOXX [Suspect]
     Indication: LOCALISED OSTEOARTHRITIS
     Route: 048
     Dates: start: 20020801, end: 20030401
  7. VIOXX [Suspect]
     Indication: BACK PAIN
     Route: 048
     Dates: start: 20020801, end: 20030401

REACTIONS (5)
  - DEATH [None]
  - DIALYSIS [None]
  - DRUG INTERACTION [None]
  - DUODENAL ULCER HAEMORRHAGE [None]
  - RENAL FAILURE [None]
